FAERS Safety Report 11419469 (Version 1)
Quarter: 2015Q3

REPORT INFORMATION
  Report Type: Spontaneous
  Country: US (occurrence: None)
  Receive Date: 20150825
  Receipt Date: 20150825
  Transmission Date: 20151125
  Serious: Yes (Other)
  Sender: FDA-Public Use
  Company Number: US-2015CRT000563

PATIENT
  Age: 27 Year
  Sex: Female
  Weight: 104.3 kg

DRUGS (13)
  1. LEVOTHYROXINE. [Concomitant]
     Active Substance: LEVOTHYROXINE
  2. ZOFRAN (ONDANSETRON) [Concomitant]
  3. TIZANIDINE. [Concomitant]
     Active Substance: TIZANIDINE
  4. METFORMIN [Concomitant]
     Active Substance: METFORMIN HYDROCHLORIDE
  5. XANAX [Concomitant]
     Active Substance: ALPRAZOLAM
  6. LIPITOR [Concomitant]
     Active Substance: ATORVASTATIN CALCIUM
  7. MELOXICAM. [Concomitant]
     Active Substance: MELOXICAM
  8. OXYCODONE [Concomitant]
     Active Substance: OXYCODONE
  9. KORLYM [Suspect]
     Active Substance: MIFEPRISTONE
     Indication: CUSHING^S SYNDROME
     Route: 048
     Dates: start: 20150727, end: 20150802
  10. TRULICITY (DULAGLUTIDE) [Concomitant]
  11. TRAMADOL. [Concomitant]
     Active Substance: TRAMADOL
  12. ZOLOFT [Concomitant]
     Active Substance: SERTRALINE HYDROCHLORIDE
  13. TRAZODONE [Concomitant]
     Active Substance: TRAZODONE HYDROCHLORIDE

REACTIONS (8)
  - Syncope [None]
  - Feeling drunk [None]
  - Fatigue [None]
  - Feeling abnormal [None]
  - Nausea [None]
  - Dizziness [None]
  - Headache [None]
  - Head injury [None]

NARRATIVE: CASE EVENT DATE: 20150713
